FAERS Safety Report 6765251-X (Version None)
Quarter: 2010Q2

REPORT INFORMATION
  Report Type: 
  Country: None (occurrence: None)
  Receive Date: 20100611
  Receipt Date: 20100420
  Transmission Date: 20101027
  Serious: Yes (Other)
  Sender: FDA-Public Use
  Company Number: US-BAYER-200940151NA

PATIENT
  Age: 46 Year
  Sex: Female
  Weight: 82 kg

DRUGS (7)
  1. YASMIN [Suspect]
     Indication: CONTRACEPTION
     Route: 048
     Dates: start: 20030101, end: 20061101
  2. MACROBID [Concomitant]
     Route: 065
     Dates: start: 20030101
  3. AMOXICILLIN [Concomitant]
     Route: 065
     Dates: start: 20030101
  4. NSAIDS [Concomitant]
     Route: 065
     Dates: start: 20030101
  5. LEVAQUIN [Concomitant]
     Route: 065
     Dates: start: 20030101
  6. LEXAPRO [Concomitant]
     Route: 065
     Dates: start: 20030101
  7. SARAFEM [Concomitant]

REACTIONS (4)
  - OEDEMA PERIPHERAL [None]
  - PHLEBITIS SUPERFICIAL [None]
  - THROMBOPHLEBITIS SUPERFICIAL [None]
  - VASODILATATION [None]
